FAERS Safety Report 5915398-2 (Version None)
Quarter: 2008Q4

REPORT INFORMATION
  Report Type: 
  Country: None (occurrence: None)
  Receive Date: 20081010
  Receipt Date: 20080929
  Transmission Date: 20090506
  Serious: Yes (Disabling)
  Sender: FDA-Public Use
  Company Number: ZA-WYE-H06249308

PATIENT
  Age: 76 Year
  Sex: Male

DRUGS (7)
  1. AMIODARONE [Suspect]
     Indication: ATRIAL FIBRILLATION
     Dosage: UNSPECIFIED
     Route: 042
  2. CORDARONE [Suspect]
     Indication: ATRIAL FIBRILLATION
     Route: 048
  3. CORDARONE [Suspect]
     Route: 048
  4. NORVASC [Concomitant]
     Indication: HYPERTENSION
     Dosage: 2.5 MG
     Route: 048
  5. PURICOS [Concomitant]
     Indication: PROPHYLAXIS
     Dosage: 300 MG
     Route: 048
  6. COAPROVEL [Concomitant]
     Indication: HYPERTENSION
     Dosage: 300 MG
     Route: 048
  7. CARDURA [Concomitant]
     Indication: HYPERTENSION
     Dosage: 4 MG
     Route: 048

REACTIONS (2)
  - PAPILLOEDEMA [None]
  - VISION BLURRED [None]
